FAERS Safety Report 9918003 (Version 2)
Quarter: 2014Q1

REPORT INFORMATION
  Report Type: Spontaneous
  Country: US (occurrence: US)
  Receive Date: 20140222
  Receipt Date: 20140222
  Transmission Date: 20141002
  Serious: Yes (Other)
  Sender: FDA-Public Use
  Company Number: US-GE HEALTHCARE MEDICAL DIAGNOSTICS-OSCN-PR-1011S-0280

PATIENT
  Age: 58 Year
  Sex: Female

DRUGS (2)
  1. OMNISCAN [Suspect]
     Indication: ARTERIAL STENOSIS
     Route: 042
     Dates: start: 20031020, end: 20031020
  2. OMNISCAN [Suspect]
     Route: 042
     Dates: start: 20060721, end: 20060721

REACTIONS (1)
  - Nephrogenic systemic fibrosis [Not Recovered/Not Resolved]
